FAERS Safety Report 25768302 (Version 1)
Quarter: 2025Q3

REPORT INFORMATION
  Report Type: Spontaneous
  Country: US (occurrence: US)
  Receive Date: 20250905
  Receipt Date: 20250905
  Transmission Date: 20251021
  Serious: No
  Sender: DOMPE FARMACEUTICI
  Company Number: US-FARMAPROD-202506-2032

PATIENT
  Age: 61 Year
  Sex: Female
  Weight: 66.09 kg

DRUGS (9)
  1. OXERVATE [Suspect]
     Active Substance: CENEGERMIN-BKBJ
     Indication: Neurotrophic keratopathy
     Route: 047
     Dates: start: 20250611
  2. NM-6603 [Concomitant]
     Active Substance: NM-6603
  3. CENTRUM SILVER WOMEN [Concomitant]
  4. URSODIOL [Concomitant]
     Active Substance: URSODIOL
  5. UNSPECIFIED INGREDIENT [Concomitant]
     Active Substance: UNSPECIFIED INGREDIENT
  6. TOBRADEX ST [Concomitant]
     Active Substance: DEXAMETHASONE\TOBRAMYCIN
  7. XIIDRA [Concomitant]
     Active Substance: LIFITEGRAST
  8. IQIRVO [Concomitant]
     Active Substance: ELAFIBRANOR
  9. FLUOXETINE HYDROCHLORIDE [Concomitant]
     Active Substance: FLUOXETINE HYDROCHLORIDE

REACTIONS (1)
  - Eyelid pain [Unknown]

NARRATIVE: CASE EVENT DATE: 20250612
